FAERS Safety Report 5424742-4 (Version None)
Quarter: 2007Q3

REPORT INFORMATION
  Report Type: 
  Country: None (occurrence: None)
  Receive Date: 20070822
  Receipt Date: 20070815
  Transmission Date: 20080115
  Serious: Yes (Hospitalization)
  Sender: FDA-Public Use
  Company Number: US021033

PATIENT
  Age: 69 Year
  Sex: Female

DRUGS (5)
  1. PROVIGIL [Suspect]
     Indication: SOMNOLENCE
     Dosage: 200 MG QD ORAL
     Route: 048
     Dates: start: 20040601
  2. CYMBALTA [Concomitant]
  3. DIOVAN /01319601/ [Concomitant]
  4. ACTONEL [Concomitant]
  5. PREMPRO [Concomitant]

REACTIONS (3)
  - FALL [None]
  - HEAD INJURY [None]
  - SUBDURAL HAEMATOMA [None]
